FAERS Safety Report 9744436 (Version 2)
Quarter: 2014Q3

REPORT INFORMATION
  Report Type: Spontaneous
  Country: US (occurrence: US)
  Receive Date: 20131210
  Receipt Date: 20140808
  Transmission Date: 20150326
  Serious: Yes (Hospitalization, Other)
  Sender: FDA-Public Use
  Company Number: US-B.I. PHARMACEUTICALS,INC./RIDGEFIELD-2013-BI-40875BP

PATIENT
  Age: 65 Year
  Sex: Female
  Weight: 139 kg

DRUGS (3)
  1. SOTOLAL [Concomitant]
     Indication: ATRIAL FIBRILLATION
     Route: 065
     Dates: start: 2011
  2. LASIX [Concomitant]
     Active Substance: FUROSEMIDE
     Indication: LOCAL SWELLING
     Dosage: 40 MG
     Route: 048
     Dates: start: 2012
  3. PRADAXA [Suspect]
     Active Substance: DABIGATRAN ETEXILATE MESYLATE
     Indication: ATRIAL FIBRILLATION
     Dosage: 150 MG
     Route: 048
     Dates: start: 2011

REACTIONS (5)
  - Wound infection staphylococcal [Not Recovered/Not Resolved]
  - Arthritis [Recovered/Resolved]
  - Staphylococcal infection [Recovered/Resolved]
  - Thyroid cancer [Not Recovered/Not Resolved]
  - Thyroid neoplasm [Recovered/Resolved]

NARRATIVE: CASE EVENT DATE: 201211
